FAERS Safety Report 9253222 (Version 1)
Quarter: 2013Q2

REPORT INFORMATION
  Report Type: Spontaneous
  Country: US (occurrence: US)
  Receive Date: 20130424
  Receipt Date: 20130424
  Transmission Date: 20140414
  Serious: No
  Sender: FDA-Public Use
  Company Number: US-009507513-1304USA008452

PATIENT
  Sex: Female

DRUGS (4)
  1. REMERON [Suspect]
     Indication: MYOCARDIAL INFARCTION
     Dosage: 15 MG, QD, ONE TABLET BY MOUTH AT BEDTIME
     Route: 048
     Dates: start: 2012
  2. REMERON [Suspect]
     Indication: NERVOUSNESS
  3. REMERON [Suspect]
     Indication: HALLUCINATION
  4. LORAZEPAM [Concomitant]

REACTIONS (7)
  - Fall [Not Recovered/Not Resolved]
  - Hypoxia [Not Recovered/Not Resolved]
  - Asthenia [Not Recovered/Not Resolved]
  - Drug ineffective for unapproved indication [Unknown]
  - Off label use [Unknown]
  - Surgery [Unknown]
  - General physical health deterioration [Unknown]
